FAERS Safety Report 11292769 (Version 1)
Quarter: 2015Q3

REPORT INFORMATION
  Report Type: Report from Study
  Country: IT (occurrence: IT)
  Receive Date: 20150722
  Receipt Date: 20150722
  Transmission Date: 20151125
  Serious: Yes (Hospitalization)
  Sender: FDA-Public Use
  Company Number: IT-ABBVIE-15P-083-1428301-00

PATIENT
  Age: 78 Year
  Sex: Female

DRUGS (1)
  1. DUODOPA [Suspect]
     Active Substance: CARBIDOPA\LEVODOPA
     Indication: PARKINSON^S DISEASE
     Dosage: 828 MG, MD 3+3, CR 1.9, ED 2.4
     Route: 050
     Dates: start: 20071120

REACTIONS (2)
  - Lung infection [Unknown]
  - Infection [Unknown]

NARRATIVE: CASE EVENT DATE: 201507
